FAERS Safety Report 13705055 (Version 1)
Quarter: 2017Q2

REPORT INFORMATION
  Report Type: Spontaneous
  Country: US (occurrence: US)
  Receive Date: 20170629
  Receipt Date: 20170629
  Transmission Date: 20170830
  Serious: Yes (Other)
  Sender: FDA-Public Use
  Company Number: None

PATIENT
  Sex: Male
  Weight: 80.55 kg

DRUGS (1)
  1. SUBOXONE [Suspect]
     Active Substance: BUPRENORPHINE HYDROCHLORIDE\NALOXONE HYDROCHLORIDE
     Indication: DRUG USE DISORDER
     Dosage: DAILY SUBLINGUAL
     Route: 060
     Dates: start: 20170223, end: 20170330

REACTIONS (6)
  - Rash pruritic [None]
  - Drug hypersensitivity [None]
  - Rash erythematous [None]
  - Rash [None]
  - Palatal disorder [None]
  - Papule [None]
